FAERS Safety Report 5585799-3 (Version None)
Quarter: 2008Q1

REPORT INFORMATION
  Report Type: 
  Country: None (occurrence: None)
  Receive Date: 20080109
  Receipt Date: 20071012
  Transmission Date: 20080703
  Serious: Yes (Hospitalization, Other)
  Sender: FDA-Public Use
  Company Number: GB-RANBAXY-2007RR-09787

PATIENT

DRUGS (6)
  1. FLUCLOXACILLIN CAPSULES BP 250MG [Suspect]
     Indication: INFECTION
     Route: 042
  2. LEVOFLOXACIN [Suspect]
     Indication: STAPHYLOCOCCAL INFECTION
  3. LEVOFLOXACIN [Suspect]
     Indication: PSEUDOMONAS INFECTION
  4. PARACETAMOL TABLETS BP 500MG [Suspect]
     Dosage: 1 G, QID
     Route: 048
  5. RIFAMPICIN [Suspect]
     Indication: STAPHYLOCOCCAL INFECTION
     Dosage: UNK
  6. RIFAMPICIN [Suspect]
     Indication: PSEUDOMONAS INFECTION

REACTIONS (6)
  - CONFUSIONAL STATE [None]
  - COORDINATION ABNORMAL [None]
  - DEPRESSED LEVEL OF CONSCIOUSNESS [None]
  - METABOLIC ACIDOSIS [None]
  - METABOLIC ENCEPHALOPATHY [None]
  - NAUSEA [None]
